FAERS Safety Report 13162412 (Version 1)
Quarter: 2017Q1

REPORT INFORMATION
  Report Type: Spontaneous
  Country: US (occurrence: US)
  Receive Date: 20170127
  Receipt Date: 20170127
  Transmission Date: 20170428
  Serious: Yes (Hospitalization)
  Sender: FDA-Public Use
  Company Number: None

PATIENT
  Age: 42 Year
  Sex: Female
  Weight: 81 kg

DRUGS (2)
  1. BUPROPRION XL 150MG [Suspect]
     Active Substance: BUPROPION
     Indication: DEPRESSION
     Dates: start: 20170112, end: 20170124
  2. BUPROPRION XL 150MG [Suspect]
     Active Substance: BUPROPION
     Indication: ANXIETY
     Dates: start: 20170112, end: 20170124

REACTIONS (5)
  - Throat tightness [None]
  - Urticaria [None]
  - Rash [None]
  - Angioedema [None]
  - Joint swelling [None]

NARRATIVE: CASE EVENT DATE: 20170124
